FAERS Safety Report 6310376-6 (Version None)
Quarter: 2009Q3

REPORT INFORMATION
  Report Type: 
  Country: None (occurrence: None)
  Receive Date: 20090814
  Receipt Date: 20090804
  Transmission Date: 20100115
  Serious: Yes (Hospitalization)
  Sender: FDA-Public Use
  Company Number: IT-ROCHE-647675

PATIENT
  Sex: Male

DRUGS (2)
  1. PEGASYS [Suspect]
     Indication: DRUG USE FOR UNKNOWN INDICATION
     Route: 058
     Dates: start: 20081205, end: 20090703
  2. EXJADE [Concomitant]
     Dosage: DRUG NAME REPORTED AS: DEFERASIROX/ DEXJADE
     Route: 048

REACTIONS (1)
  - ANAEMIA HAEMOLYTIC AUTOIMMUNE [None]
